FAERS Safety Report 7759519-8 (Version None)
Quarter: 2011Q3

REPORT INFORMATION
  Report Type: 
  Country: None (occurrence: None)
  Receive Date: 20110919
  Receipt Date: 20110919
  Transmission Date: 20111222
  Serious: Yes (Hospitalization)
  Sender: FDA-Public Use
  Company Number: None

PATIENT
  Sex: Female
  Weight: 103 kg

DRUGS (1)
  1. LISINOPRIL [Suspect]
     Dosage: 12.5MG
     Route: 048

REACTIONS (2)
  - ANGIOEDEMA [None]
  - HYPERTENSION [None]
